FAERS Safety Report 15798653 (Version 2)
Quarter: 2019Q2

REPORT INFORMATION
  Report Type: Spontaneous
  Country: US (occurrence: US)
  Receive Date: 20190108
  Receipt Date: 20190424
  Transmission Date: 20190711
  Serious: Yes (Other)
  Sender: FDA-Public Use
  Company Number: US-SA-2019SA003395

PATIENT
  Age: 57 Year
  Sex: Female
  Weight: 100.7 kg

DRUGS (16)
  1. DEXAMETHASON [DEXAMETHASONE] [Concomitant]
     Active Substance: DEXAMETHASONE
     Dosage: UNK
     Dates: start: 20160105, end: 20161229
  2. LISINOPRIL. [Concomitant]
     Active Substance: LISINOPRIL
     Dosage: UNK
     Dates: start: 20050113
  3. ONDANSETRON [Concomitant]
     Active Substance: ONDANSETRON
     Dosage: UNK
     Dates: start: 20160105, end: 20161229
  4. PROCHLORPERAZINE. [Concomitant]
     Active Substance: PROCHLORPERAZINE
     Dosage: UNK
     Dates: start: 20160105, end: 20161229
  5. ATORVASTATIN [Concomitant]
     Active Substance: ATORVASTATIN
     Dosage: UNK
     Dates: start: 20160105, end: 20161229
  6. TEMAZEPAM. [Concomitant]
     Active Substance: TEMAZEPAM
     Dosage: UNK
     Dates: start: 20160105, end: 20161229
  7. TAXOTERE [Suspect]
     Active Substance: DOCETAXEL
     Indication: BREAST CANCER
     Dosage: 171.8 MG, Q3W
     Route: 042
     Dates: start: 20160503, end: 20160503
  8. HYDROCORTISONE. [Concomitant]
     Active Substance: HYDROCORTISONE
     Dosage: UNK
     Dates: start: 20160105, end: 20161229
  9. FERROUS SULFATE. [Concomitant]
     Active Substance: FERROUS SULFATE
     Dosage: UNK
     Dates: start: 20160105, end: 20161229
  10. ANASTROZOLE. [Concomitant]
     Active Substance: ANASTROZOLE
     Dosage: UNK
     Dates: start: 20160105, end: 20161229
  11. ALPRAZOLAM. [Concomitant]
     Active Substance: ALPRAZOLAM
     Dosage: UNK
     Dates: start: 20160105, end: 20161229
  12. ATENOLOL. [Concomitant]
     Active Substance: ATENOLOL
     Dosage: UNK
     Dates: start: 19900506
  13. CODEINE [Concomitant]
     Active Substance: CODEINE
     Dosage: UNK
     Dates: start: 20060105, end: 20161229
  14. OXYCODONE [Concomitant]
     Active Substance: OXYCODONE
     Dosage: UNK
     Dates: start: 20160105, end: 20161229
  15. TAXOTERE [Suspect]
     Active Substance: DOCETAXEL
     Dosage: 171.8 MG, Q3W
     Route: 042
     Dates: start: 20160705, end: 20160705
  16. SILVER SULFATE [Concomitant]
     Active Substance: SILVER SULFATE
     Dosage: UNK
     Dates: start: 20160105, end: 20161229

REACTIONS (1)
  - Alopecia [Not Recovered/Not Resolved]

NARRATIVE: CASE EVENT DATE: 20170105
